FAERS Safety Report 5717283-8 (Version None)
Quarter: 2008Q2

REPORT INFORMATION
  Report Type: 
  Country: None (occurrence: None)
  Receive Date: 20080423
  Receipt Date: 20080407
  Transmission Date: 20081010
  Serious: Yes (Other)
  Sender: FDA-Public Use
  Company Number: S07-FRA-02705-01

PATIENT
  Age: 90 Year
  Sex: Female
  Weight: 67.6 kg

DRUGS (6)
  1. MEMANTINE HCL [Suspect]
     Indication: DEMENTIA ALZHEIMER'S TYPE
     Dosage: 20 MG QD PO
     Route: 048
     Dates: start: 20060801
  2. ARICEPT [Concomitant]
  3. FLECAINIDE ACETATE [Concomitant]
  4. VIRLIX (CETIRIZINE HYDROCHLORIDE) [Concomitant]
  5. EQUANIL [Concomitant]
  6. IMOVANE (ZOPICLONE) [Concomitant]

REACTIONS (10)
  - CONVULSION [None]
  - DEHYDRATION [None]
  - DEMENTIA [None]
  - DIARRHOEA [None]
  - DISEASE PROGRESSION [None]
  - EPILEPSY [None]
  - GENERAL PHYSICAL HEALTH DETERIORATION [None]
  - MALAISE [None]
  - NEUTROPHIL COUNT INCREASED [None]
  - WHITE BLOOD CELL COUNT INCREASED [None]
